FAERS Safety Report 23818872 (Version 1)
Quarter: 2024Q2

REPORT INFORMATION
  Report Type: Spontaneous
  Country: DE (occurrence: DE)
  Receive Date: 20240506
  Receipt Date: 20240506
  Transmission Date: 20240715
  Serious: Yes (Death, Other)
  Sender: FDA-Public Use
  Company Number: DE-AMGEN-DEUSP2024087354

PATIENT

DRUGS (1)
  1. BEVACIZUMAB [Suspect]
     Active Substance: BEVACIZUMAB
     Indication: Gastrointestinal neuroendocrine carcinoma
     Dosage: UNK
     Route: 065

REACTIONS (3)
  - Death [Fatal]
  - Gastrointestinal neuroendocrine carcinoma [Unknown]
  - Off label use [Unknown]
